FAERS Safety Report 6568002-7 (Version None)
Quarter: 2010Q1

REPORT INFORMATION
  Report Type: 
  Country: None (occurrence: None)
  Receive Date: 20100203
  Receipt Date: 20100125
  Transmission Date: 20100710
  Serious: Yes (Hospitalization, Other)
  Sender: FDA-Public Use
  Company Number: CA-JNJFOC-20091200735

PATIENT
  Sex: Female
  Weight: 70 kg

DRUGS (9)
  1. REMICADE [Suspect]
     Indication: CROHN'S DISEASE
     Dosage: 6TH DOSE
     Route: 042
     Dates: start: 20090623, end: 20100125
  2. REMICADE [Suspect]
     Route: 042
     Dates: start: 20090623, end: 20100125
  3. REMICADE [Suspect]
     Route: 042
     Dates: start: 20090623, end: 20100125
  4. SYNTHROID [Concomitant]
  5. LOSEC [Concomitant]
  6. CITALOPRAM [Concomitant]
  7. VITAMIN D [Concomitant]
  8. CALCIUM [Concomitant]
  9. TETRACYCLINE [Concomitant]

REACTIONS (4)
  - AMMONIA INCREASED [None]
  - DIARRHOEA [None]
  - HYPERTENSION [None]
  - PAIN [None]
